FAERS Safety Report 23974461 (Version 1)
Quarter: 2024Q2

REPORT INFORMATION
  Report Type: Spontaneous
  Country: JP (occurrence: JP)
  Receive Date: 20240614
  Receipt Date: 20240614
  Transmission Date: 20240715
  Serious: Yes (Death, Hospitalization, Other)
  Sender: FDA-Public Use
  Company Number: JP-BoehringerIngelheim-2024-BI-033316

PATIENT
  Age: 78 Year
  Sex: Male
  Weight: 65.8 kg

DRUGS (3)
  1. LINAGLIPTIN [Suspect]
     Active Substance: LINAGLIPTIN
     Indication: Type 2 diabetes mellitus
  2. ALOGLIPTIN [Suspect]
     Active Substance: ALOGLIPTIN
     Indication: Blood glucose increased
  3. TENELIGLIPTIN [Suspect]
     Active Substance: TENELIGLIPTIN
     Indication: Blood glucose increased

REACTIONS (8)
  - Hepatocellular carcinoma [Fatal]
  - Renal impairment [Not Recovered/Not Resolved]
  - Pemphigoid [Unknown]
  - Nephrosclerosis [Unknown]
  - Renal failure [Unknown]
  - Tubulointerstitial nephritis [Unknown]
  - Immunoglobulin G4 related disease [Unknown]
  - Renal disorder [Unknown]
